FAERS Safety Report 5949484-8 (Version None)
Quarter: 2008Q4

REPORT INFORMATION
  Report Type: 
  Country: None (occurrence: None)
  Receive Date: 20081112
  Receipt Date: 20081104
  Transmission Date: 20090506
  Serious: Yes (Hospitalization, Other)
  Sender: FDA-Public Use
  Company Number: PHHY2008CA27391

PATIENT
  Sex: Female

DRUGS (4)
  1. RASILEZ [Suspect]
     Dosage: 150 MG, UNK
  2. METHOTREXATE [Concomitant]
  3. PREDNISONE TAB [Concomitant]
  4. HYDROXYCHLOROQUINE [Concomitant]

REACTIONS (4)
  - ABASIA [None]
  - ASTHENIA [None]
  - DIZZINESS [None]
  - MENTAL IMPAIRMENT [None]
